FAERS Safety Report 6480121-2 (Version None)
Quarter: 2009Q4

REPORT INFORMATION
  Report Type: 
  Country: None (occurrence: None)
  Receive Date: 20091208
  Receipt Date: 20091202
  Transmission Date: 20100525
  Serious: Yes (Death, Other)
  Sender: FDA-Public Use
  Company Number: JP-BAYER-200811300BYL

PATIENT
  Age: 61 Year
  Sex: Male
  Weight: 57 kg

DRUGS (5)
  1. NEXAVAR [Suspect]
     Indication: RENAL CELL CARCINOMA
     Dosage: TOTAL DAILY DOSE: 800 MG  UNIT DOSE: 200 MG
     Route: 048
     Dates: start: 20080617, end: 20080722
  2. DEPAS [Concomitant]
     Dosage: TOTAL DAILY DOSE: 0.5 MG  UNIT DOSE: 0.5 MG
     Route: 048
     Dates: start: 20080617, end: 20080725
  3. GABAPEN [Concomitant]
     Dosage: TOTAL DAILY DOSE: 1200 MG  UNIT DOSE: 400 MG
     Route: 048
     Dates: start: 20080525, end: 20080719
  4. DUROTEP [Concomitant]
     Route: 062
     Dates: start: 20080615, end: 20080723
  5. MICARDIS [Concomitant]
     Route: 048
     Dates: start: 20080520, end: 20080725

REACTIONS (6)
  - C-REACTIVE PROTEIN INCREASED [None]
  - DELUSION [None]
  - DISORIENTATION [None]
  - HAEMOGLOBIN DECREASED [None]
  - HYPERTENSION [None]
  - RENAL CELL CARCINOMA [None]
